FAERS Safety Report 8043665-8 (Version None)
Quarter: 2012Q1

REPORT INFORMATION
  Report Type: 
  Country: None (occurrence: None)
  Receive Date: 20120112
  Receipt Date: 20120105
  Transmission Date: 20120608
  Serious: Yes (Hospitalization, Disabling)
  Sender: FDA-Public Use
  Company Number: US-MERCK-1107USA03277

PATIENT
  Age: 60 Year
  Sex: Female

DRUGS (14)
  1. FOSAMAX [Suspect]
     Route: 048
     Dates: start: 20051201
  2. FOSAMAX [Suspect]
     Route: 048
     Dates: start: 20051201
  3. CALCIUM (UNSPECIFIED) [Concomitant]
     Route: 048
     Dates: start: 19950101
  4. FOSAMAX [Suspect]
     Route: 048
     Dates: start: 20030501, end: 20051101
  5. FOSAMAX [Suspect]
     Indication: OSTEOPOROSIS
     Route: 048
     Dates: start: 19981101, end: 20030401
  6. FOSAMAX [Suspect]
     Route: 048
     Dates: start: 20060101, end: 20080101
  7. FOSAMAX [Suspect]
     Route: 048
     Dates: start: 20080201, end: 20090201
  8. FOSAMAX [Suspect]
     Route: 048
     Dates: start: 20090301, end: 20100101
  9. FOSAMAX [Suspect]
     Route: 048
     Dates: start: 20060101, end: 20080101
  10. FOSAMAX [Suspect]
     Indication: OSTEOPOROSIS PROPHYLAXIS
     Route: 048
     Dates: start: 19981101, end: 20030401
  11. FOSAMAX [Suspect]
     Route: 048
     Dates: start: 20080201, end: 20090201
  12. FOSAMAX [Suspect]
     Route: 048
     Dates: start: 20090301, end: 20100101
  13. VITAMIN D (UNSPECIFIED) [Concomitant]
     Route: 048
     Dates: start: 19950101
  14. FOSAMAX [Suspect]
     Route: 048
     Dates: start: 20030501, end: 20051101

REACTIONS (7)
  - HYPERTENSION [None]
  - HYPERCHOLESTEROLAEMIA [None]
  - LOW TURNOVER OSTEOPATHY [None]
  - BONE DISORDER [None]
  - FEMUR FRACTURE [None]
  - FRACTURE NONUNION [None]
  - GASTROOESOPHAGEAL REFLUX DISEASE [None]
